FAERS Safety Report 5979032-8 (Version None)
Quarter: 2008Q4

REPORT INFORMATION
  Report Type: 
  Country: None (occurrence: None)
  Receive Date: 20081204
  Receipt Date: 20081125
  Transmission Date: 20090506
  Serious: Yes (Other)
  Sender: FDA-Public Use
  Company Number: US-AMGEN-US306700

PATIENT
  Sex: Male
  Weight: 111.2 kg

DRUGS (4)
  1. VECTIBIX [Suspect]
     Indication: COLORECTAL CANCER
     Route: 042
     Dates: start: 20080724, end: 20080821
  2. VECTIBIX [Suspect]
     Route: 042
     Dates: start: 20080929, end: 20081013
  3. VECTIBIX [Suspect]
     Route: 042
     Dates: start: 20081027
  4. ATENOLOL [Concomitant]
     Route: 065
     Dates: start: 20050812

REACTIONS (2)
  - PALMAR-PLANTAR ERYTHRODYSAESTHESIA SYNDROME [None]
  - RASH [None]
